FAERS Safety Report 8945394 (Version 1)
Quarter: 2012Q4

REPORT INFORMATION
  Report Type: 
  Country: US (occurrence: US)
  Receive Date: 20121205
  Receipt Date: 20121205
  Transmission Date: 20130627
  Serious: Yes (Other)
  Sender: FDA-Public Use
  Company Number: US-PFIZER INC-2012302052

PATIENT
  Age: 16 Year
  Sex: Male

DRUGS (3)
  1. GENOTROPIN [Suspect]
     Indication: GROWTH HORMONE DEFICIENCY
     Dosage: 2 mg, UNK
  2. WELLBUTRIN [Concomitant]
     Dosage: UNK
  3. VITAMIN D [Concomitant]
     Dosage: 400 IU, UNK

REACTIONS (2)
  - Cystic fibrosis [Unknown]
  - Gallbladder disorder [Unknown]
